FAERS Safety Report 7275937-9 (Version None)
Quarter: 2011Q1

REPORT INFORMATION
  Report Type: 
  Country: None (occurrence: None)
  Receive Date: 20110204
  Receipt Date: 20110127
  Transmission Date: 20110831
  Serious: Yes (Hospitalization)
  Sender: FDA-Public Use
  Company Number: A0896707A

PATIENT
  Age: 84 Year
  Sex: Female

DRUGS (3)
  1. NEBULIZER [Concomitant]
  2. COMBIVENT [Concomitant]
  3. ADVAIR [Suspect]
     Indication: BRONCHITIS
     Dosage: 1BLS TWICE PER DAY
     Route: 055

REACTIONS (3)
  - BRONCHITIS [None]
  - MUSCLE SPASMS [None]
  - DRUG ADMINISTRATION ERROR [None]
